FAERS Safety Report 11195781 (Version 2)
Quarter: 2015Q2

REPORT INFORMATION
  Report Type: Not Available
  Country: FR (occurrence: FR)
  Receive Date: 20150617
  Receipt Date: 20150625
  Transmission Date: 20150821
  Serious: Yes (Hospitalization)
  Sender: FDA-Public Use
  Company Number: FR-BEH-2015051751

PATIENT
  Age: 69 Year
  Sex: Male

DRUGS (2)
  1. PRIVIGEN [Suspect]
     Active Substance: HUMAN IMMUNOGLOBULIN G
     Indication: LEWIS-SUMNER SYNDROME
     Dosage: INFUSION DISCONTINUED AFTER 20 G (20 G, 1 IN 1 INTRAKE)
     Route: 042
     Dates: start: 20150501, end: 20150501
  2. CALCIUM CHANNEL BLOCKERS [Concomitant]
     Active Substance: UNSPECIFIED INGREDIENT
     Indication: BLOOD PRESSURE INCREASED
     Dates: start: 20150501

REACTIONS (7)
  - Hypertension [Recovered/Resolved]
  - Hemiplegia [Recovering/Resolving]
  - Generalised tonic-clonic seizure [Recovering/Resolving]
  - Blindness [Recovering/Resolving]
  - Loss of consciousness [Recovering/Resolving]
  - Posterior reversible encephalopathy syndrome [Recovering/Resolving]
  - Confusional state [Recovering/Resolving]

NARRATIVE: CASE EVENT DATE: 20150501
